FAERS Safety Report 7286314-9 (Version None)
Quarter: 2011Q1

REPORT INFORMATION
  Report Type: 
  Country: None (occurrence: None)
  Receive Date: 20110210
  Receipt Date: 20110208
  Transmission Date: 20110831
  Serious: Yes (Other)
  Sender: FDA-Public Use
  Company Number: US-AMGEN-USASP2011005181

PATIENT
  Sex: Male
  Weight: 102.49 kg

DRUGS (2)
  1. CORTICOSTEROIDS [Concomitant]
  2. NPLATE [Suspect]
     Indication: IDIOPATHIC THROMBOCYTOPENIC PURPURA

REACTIONS (5)
  - NASAL SEPTUM DEVIATION [None]
  - CERUMEN IMPACTION [None]
  - EPISTAXIS [None]
  - NASAL DRYNESS [None]
  - THROMBOCYTOPENIA [None]
